FAERS Safety Report 11737818 (Version 4)
Quarter: 2016Q1

REPORT INFORMATION
  Report Type: Spontaneous
  Country: IT (occurrence: IT)
  Receive Date: 20151113
  Receipt Date: 20160204
  Transmission Date: 20160525
  Serious: Yes (Hospitalization)
  Sender: FDA-Public Use
  Company Number: IT-OTSUKA-2015_014025

PATIENT
  Age: 61 Year
  Sex: Male

DRUGS (15)
  1. PANTORC [Concomitant]
     Active Substance: PANTOPRAZOLE SODIUM
     Indication: GASTRITIS PROPHYLAXIS
     Dosage: UNK
     Route: 065
     Dates: start: 20151006
  2. SAMSCA [Suspect]
     Active Substance: TOLVAPTAN
     Indication: HYPONATRAEMIA
     Dosage: 7.5 MG, QD
     Route: 048
     Dates: start: 20151029, end: 20151104
  3. SAMSCA [Suspect]
     Active Substance: TOLVAPTAN
     Dosage: 7.5 MG, QD
     Route: 048
     Dates: start: 20151108, end: 20151110
  4. SAMSCA [Suspect]
     Active Substance: TOLVAPTAN
     Dosage: 5 MG, QD
     Route: 048
     Dates: start: 20151112, end: 20151112
  5. SAMSCA [Suspect]
     Active Substance: TOLVAPTAN
     Dosage: 7.5 MG, QD
     Route: 048
     Dates: start: 20151106, end: 20151106
  6. DUROGESIC [Concomitant]
     Active Substance: FENTANYL
     Indication: PAIN
     Dosage: UNK
     Route: 065
     Dates: start: 20150716
  7. CALCIUM GLUCONATE. [Concomitant]
     Active Substance: CALCIUM GLUCONATE
     Indication: HYPOCALCAEMIA
     Dosage: UNK
     Route: 065
     Dates: start: 20151106, end: 20160114
  8. GRANULOKINE [Concomitant]
     Active Substance: FILGRASTIM
     Indication: LEUKOPENIA
     Dosage: UNK
     Route: 065
     Dates: start: 20151105
  9. SAMSCA [Suspect]
     Active Substance: TOLVAPTAN
     Dosage: 5 MG, QD
     Route: 048
     Dates: start: 20151114, end: 20151116
  10. CLEXANE [Concomitant]
     Active Substance: ENOXAPARIN SODIUM
     Indication: THROMBOSIS PROPHYLAXIS
     Dosage: UNK
     Route: 065
     Dates: start: 20151006
  11. DEPAKIN [Concomitant]
     Active Substance: VALPROATE SODIUM
     Indication: SUPPORTIVE CARE
     Dosage: UNK
     Route: 065
     Dates: start: 201510
  12. SAMSCA [Suspect]
     Active Substance: TOLVAPTAN
     Dosage: 5 MG, QD
     Route: 048
     Dates: start: 20151118, end: 20151122
  13. SAMSCA [Suspect]
     Active Substance: TOLVAPTAN
     Dosage: 3.75 MG, QD
     Route: 048
     Dates: start: 20151105, end: 20151105
  14. PLAUNAC [Concomitant]
     Active Substance: OLMESARTAN MEDOXOMIL
     Indication: HYPERTENSION
     Dosage: UNK
     Route: 065
     Dates: start: 201110
  15. LYRICA [Concomitant]
     Active Substance: PREGABALIN
     Indication: PAIN
     Dosage: UNK
     Route: 065
     Dates: start: 20151028

REACTIONS (2)
  - Hyponatraemia [Recovered/Resolved]
  - Prescribed underdose [Unknown]

NARRATIVE: CASE EVENT DATE: 20151104
